FAERS Safety Report 16304813 (Version 2)
Quarter: 2019Q2

REPORT INFORMATION
  Report Type: Report from Study
  Country: US (occurrence: US)
  Receive Date: 20190513
  Receipt Date: 20190620
  Transmission Date: 20190711
  Serious: Yes (Hospitalization)
  Sender: FDA-Public Use
  Company Number: US-ACTELION-A-NJ2019-187640

PATIENT
  Age: 79 Year
  Sex: Female

DRUGS (15)
  1. OPSUMIT [Suspect]
     Active Substance: MACITENTAN
     Indication: PULMONARY ARTERIAL HYPERTENSION
     Dosage: 10 MG, QD
     Route: 048
     Dates: start: 20171221
  2. TORSEMIDE. [Concomitant]
     Active Substance: TORSEMIDE
  3. ADCIRCA [Suspect]
     Active Substance: TADALAFIL
     Indication: PULMONARY ARTERIAL HYPERTENSION
     Dosage: 40 MG, QD
     Route: 048
     Dates: start: 20180123
  4. SPIRONOLACTONE. [Concomitant]
     Active Substance: SPIRONOLACTONE
  5. LEVOTHYROXINE. [Concomitant]
     Active Substance: LEVOTHYROXINE
  6. PREDNISONE. [Concomitant]
     Active Substance: PREDNISONE
  7. GABAPENTIN. [Concomitant]
     Active Substance: GABAPENTIN
  8. TRAMADOL. [Concomitant]
     Active Substance: TRAMADOL
  9. COLCHICINE. [Concomitant]
     Active Substance: COLCHICINE
  10. FLUTICASONE. [Concomitant]
     Active Substance: FLUTICASONE
  11. HYDROCODONE BITARTRATE W/PARACETAMOL [Concomitant]
     Active Substance: ACETAMINOPHEN\HYDROCODONE BITARTRATE
  12. ROPINIROLE. [Concomitant]
     Active Substance: ROPINIROLE
  13. CYCLOBENZAPRINE. [Concomitant]
     Active Substance: CYCLOBENZAPRINE
  14. NITROFURANTIN [Concomitant]
     Active Substance: NITROFURANTOIN
  15. CEPHALEXIN. [Concomitant]
     Active Substance: CEPHALEXIN

REACTIONS (7)
  - Therapy change [Not Recovered/Not Resolved]
  - Hospitalisation [Unknown]
  - Product dose omission [Unknown]
  - Neck pain [Unknown]
  - Pain in extremity [Unknown]
  - Bronchitis [Unknown]
  - Intestinal obstruction [Not Recovered/Not Resolved]

NARRATIVE: CASE EVENT DATE: 20190424
